FAERS Safety Report 21728970 (Version 1)
Quarter: 2022Q4

REPORT INFORMATION
  Report Type: Spontaneous
  Country: US (occurrence: US)
  Receive Date: 20221214
  Receipt Date: 20221214
  Transmission Date: 20230112
  Serious: No
  Sender: FDA-Public Use
  Company Number: US-ALLERGAN-2227284US

PATIENT
  Sex: Female

DRUGS (1)
  1. DALVANCE [Suspect]
     Active Substance: DALBAVANCIN
     Indication: Product used for unknown indication
     Dosage: 1500 MG, SINGLE
     Route: 058
     Dates: start: 2022, end: 2022

REACTIONS (1)
  - Rash [Unknown]
